FAERS Safety Report 7526549-0 (Version None)
Quarter: 2011Q2

REPORT INFORMATION
  Report Type: 
  Country: None (occurrence: None)
  Receive Date: 20110606
  Receipt Date: 20110524
  Transmission Date: 20111010
  Serious: Yes (Other)
  Sender: FDA-Public Use
  Company Number: US-ELI_LILLY_AND_COMPANY-US201009003170

PATIENT
  Sex: Female

DRUGS (1)
  1. FORTEO [Suspect]
     Indication: OSTEOPOROSIS
     Dosage: 20 UG, DAILY (1/D)
     Dates: start: 20081125, end: 20101124

REACTIONS (7)
  - RIB FRACTURE [None]
  - COUGH [None]
  - PULMONARY MASS [None]
  - LUNG CONSOLIDATION [None]
  - PAIN [None]
  - LUNG NEOPLASM [None]
  - LUNG INFILTRATION [None]
